FAERS Safety Report 4878596-5 (Version None)
Quarter: 2006Q1

REPORT INFORMATION
  Report Type: 
  Country: None (occurrence: None)
  Receive Date: 20060112
  Receipt Date: 20051017
  Transmission Date: 20060701
  Serious: No
  Sender: FDA-Public Use
  Company Number: US-BRISTOL-MYERS SQUIBB COMPANY-13146931

PATIENT
  Age: 57 Year
  Sex: Female
  Weight: 73 kg

DRUGS (3)
  1. EURAX [Suspect]
     Indication: INFESTATION
     Route: 061
  2. PREDNISONE [Concomitant]
  3. DIOVAN [Concomitant]

REACTIONS (1)
  - DRUG INEFFECTIVE [None]
